FAERS Safety Report 20130817 (Version 1)
Quarter: 2021Q4

REPORT INFORMATION
  Report Type: Spontaneous
  Country: US (occurrence: US)
  Receive Date: 20211130
  Receipt Date: 20211130
  Transmission Date: 20220304
  Serious: No
  Sender: FDA-Public Use
  Company Number: US-PERRIGO-21US010671

PATIENT
  Sex: Male
  Weight: 66.213 kg

DRUGS (3)
  1. NICOTINE POLACRILEX [Suspect]
     Active Substance: NICOTINE
     Indication: Smoking cessation therapy
     Dosage: 1/2 LOZENGE, 15 TIMES DAILY, PRN
     Route: 002
  2. VITAMINS NOS [Concomitant]
     Active Substance: VITAMINS
     Indication: Supplementation therapy
     Dosage: UNKNOWN, UNKNOWN
     Route: 065
  3. ASPIRIN                            /00002701/ [Concomitant]
     Indication: Product used for unknown indication
     Dosage: UNKNOWN, UNKNOWN
     Route: 065

REACTIONS (2)
  - Underdose [Recovered/Resolved]
  - Wrong technique in product usage process [Recovered/Resolved]
